FAERS Safety Report 16851812 (Version 1)
Quarter: 2019Q3

REPORT INFORMATION
  Report Type: Spontaneous
  Country: GB (occurrence: GB)
  Receive Date: 20190925
  Receipt Date: 20190925
  Transmission Date: 20191005
  Serious: Yes (Other)
  Sender: FDA-Public Use
  Company Number: GB-PERRIGO-19GB011481

PATIENT

DRUGS (1)
  1. NORZOL 40MG/ML PL00427/0068 [Suspect]
     Active Substance: METRONIDAZOLE BENZOATE
     Indication: TOOTH ABSCESS
     Dosage: 200 MG, QD
     Route: 048
     Dates: start: 20190903, end: 20190904

REACTIONS (3)
  - Paraesthesia [Unknown]
  - Abdominal pain upper [Unknown]
  - Urticaria [Recovering/Resolving]

NARRATIVE: CASE EVENT DATE: 20190904
